FAERS Safety Report 5193299-8 (Version None)
Quarter: 2006Q4

REPORT INFORMATION
  Report Type: 
  Country: None (occurrence: None)
  Receive Date: 20061228
  Receipt Date: 20060905
  Transmission Date: 20070319
  Serious: No
  Sender: FDA-Public Use
  Company Number: US-GLAXOSMITHKLINE-A0619081A

PATIENT
  Age: 58 Year
  Sex: Male

DRUGS (6)
  1. AVODART [Suspect]
     Indication: BENIGN PROSTATIC HYPERPLASIA
     Dosage: .5MG PER DAY
     Route: 048
     Dates: start: 20060809
  2. NEURONTIN [Concomitant]
  3. FENTANYL [Concomitant]
  4. DIOVAN [Concomitant]
  5. CYMBALTA [Concomitant]
  6. AMBIEN [Concomitant]

REACTIONS (1)
  - HOT FLUSH [None]
